FAERS Safety Report 16985235 (Version 1)
Quarter: 2019Q4

REPORT INFORMATION
  Report Type: Spontaneous
  Country: FR (occurrence: FR)
  Receive Date: 20191101
  Receipt Date: 20191101
  Transmission Date: 20200122
  Serious: Yes (Hospitalization)
  Sender: FDA-Public Use
  Company Number: FR-PFIZER INC-2019466862

PATIENT
  Age: 42 Year
  Sex: Male
  Weight: 73 kg

DRUGS (2)
  1. MEROPENEM. [Suspect]
     Active Substance: MEROPENEM
     Indication: OSTEITIS
     Dosage: 3 DF, 1X/DAY
     Route: 042
     Dates: start: 20190917, end: 20190926
  2. BACTRIM [Suspect]
     Active Substance: SULFAMETHOXAZOLE\TRIMETHOPRIM
     Indication: OSTEITIS
     Dosage: 4 DF, 1X/DAY
     Route: 048
     Dates: start: 20190918, end: 20190929

REACTIONS (6)
  - Pyrexia [Recovered/Resolved]
  - Acute kidney injury [Recovering/Resolving]
  - Drug reaction with eosinophilia and systemic symptoms [Recovering/Resolving]
  - Off label use [Unknown]
  - Product use in unapproved indication [Unknown]
  - Rash maculo-papular [Recovering/Resolving]

NARRATIVE: CASE EVENT DATE: 20190928
